FAERS Safety Report 24001157 (Version 2)
Quarter: 2024Q3

REPORT INFORMATION
  Report Type: Spontaneous
  Country: US (occurrence: US)
  Receive Date: 20240621
  Receipt Date: 20240710
  Transmission Date: 20241017
  Serious: No
  Sender: BLUEPRINT MEDICINES
  Company Number: US-Blueprint Medicines Corporation-3933

PATIENT
  Age: 65 Year
  Sex: Male

DRUGS (1)
  1. AYVAKIT [Suspect]
     Active Substance: AVAPRITINIB
     Indication: Advanced systemic mastocytosis
     Route: 065
     Dates: start: 20230617

REACTIONS (5)
  - Hypersomnia [Unknown]
  - Flushing [Unknown]
  - Erythema [Unknown]
  - Feeling hot [Unknown]
  - Mastocytosis [Unknown]

NARRATIVE: CASE EVENT DATE: 20240501
